FAERS Safety Report 10025846 (Version 1)
Quarter: 2014Q1

REPORT INFORMATION
  Report Type: Spontaneous
  Country: JP (occurrence: JP)
  Receive Date: 20140320
  Receipt Date: 20140320
  Transmission Date: 20141002
  Serious: Yes (Other)
  Sender: FDA-Public Use
  Company Number: JP-TEVA-468060ISR

PATIENT
  Age: 65 Year
  Sex: Male

DRUGS (1)
  1. SAXIZON [Suspect]
     Dosage: 200 MILLIGRAM DAILY;
     Route: 042
     Dates: start: 20140307, end: 20140307

REACTIONS (1)
  - Shock [Recovered/Resolved]
